FAERS Safety Report 7779982-6 (Version None)
Quarter: 2011Q3

REPORT INFORMATION
  Report Type: 
  Country: None (occurrence: None)
  Receive Date: 20110922
  Receipt Date: 20110906
  Transmission Date: 20111222
  Serious: Yes (Other)
  Sender: FDA-Public Use
  Company Number: AUR-APL-2011-04950

PATIENT
  Age: 41 Year
  Sex: Female

DRUGS (1)
  1. SUMATRIPTAN (SUMATRIPTAN) (SUMATRIPTAN) [Suspect]
     Indication: PRODUCT USED FOR UNKNOWN INDICATION

REACTIONS (10)
  - CONFUSIONAL STATE [None]
  - AMNESIA [None]
  - DISORIENTATION [None]
  - NAUSEA [None]
  - FEAR [None]
  - SOMNOLENCE [None]
  - RESPIRATORY RATE INCREASED [None]
  - MENTAL IMPAIRMENT [None]
  - TREMOR [None]
  - ACTIVITIES OF DAILY LIVING IMPAIRED [None]
